FAERS Safety Report 5711358-5 (Version None)
Quarter: 2008Q2

REPORT INFORMATION
  Report Type: 
  Country: None (occurrence: None)
  Receive Date: 20080421
  Receipt Date: 20080408
  Transmission Date: 20081010
  Serious: Yes (Hospitalization)
  Sender: FDA-Public Use
  Company Number: B0516268A

PATIENT
  Age: 88 Year
  Sex: Male

DRUGS (5)
  1. AVODART [Suspect]
     Route: 048
     Dates: start: 20080211, end: 20080222
  2. PREVISCAN [Suspect]
     Route: 048
     Dates: start: 20080205, end: 20080222
  3. XATRAL [Suspect]
     Indication: URINARY RETENTION
     Route: 048
  4. PROTON PUMP INHIBITOR [Concomitant]
     Dates: start: 20080221
  5. VOLTAREN [Concomitant]
     Dates: start: 20080101

REACTIONS (3)
  - GASTROINTESTINAL HAEMORRHAGE [None]
  - MELAENA [None]
  - RED BLOOD CELL COUNT DECREASED [None]
